FAERS Safety Report 7163758-7 (Version None)
Quarter: 2010Q4

REPORT INFORMATION
  Report Type: 
  Country: None (occurrence: None)
  Receive Date: 20101215
  Receipt Date: 20100609
  Transmission Date: 20110411
  Serious: Yes (Hospitalization, Other)
  Sender: FDA-Public Use
  Company Number: US-PFIZER INC-2010060633

PATIENT
  Sex: Female
  Weight: 99.773 kg

DRUGS (6)
  1. LYRICA [Suspect]
     Indication: CONVULSION
     Dosage: 25 MG, 2X/DAY
     Route: 048
     Dates: start: 20100101
  2. INSULIN DETEMIR [Concomitant]
     Dosage: UNK
  3. CARVEDILOL [Concomitant]
     Dosage: 25 MG, 2X/DAY
  4. CATAPRES-TTS-1 [Concomitant]
     Dosage: UNK
  5. TIAZAC [Concomitant]
     Dosage: UNK
  6. CLONIDINE [Concomitant]
     Dosage: UNK

REACTIONS (10)
  - BLOOD ALBUMIN DECREASED [None]
  - BLOOD CALCIUM DECREASED [None]
  - BLOOD GLUCOSE INCREASED [None]
  - BLOOD POTASSIUM INCREASED [None]
  - BLOOD SODIUM DECREASED [None]
  - BLOOD UREA INCREASED [None]
  - CONVULSION [None]
  - FLUID RETENTION [None]
  - HAEMOGLOBIN DECREASED [None]
  - SOMNOLENCE [None]
